FAERS Safety Report 18017580 (Version 4)
Quarter: 2021Q2

REPORT INFORMATION
  Report Type: Spontaneous
  Country: US (occurrence: US)
  Receive Date: 20200713
  Receipt Date: 20210624
  Transmission Date: 20210717
  Serious: Yes (Other)
  Sender: FDA-Public Use
  Company Number: US-GILEAD-2020-0482361

PATIENT
  Age: 54 Year
  Sex: Male
  Weight: 83.9 kg

DRUGS (33)
  1. TRUVADA [Suspect]
     Active Substance: EMTRICITABINE\TENOFOVIR DISOPROXIL FUMARATE
     Indication: HIV INFECTION
     Dosage: UNK
     Route: 048
     Dates: start: 2005, end: 2009
  2. ACETAMINOPHEN. [Concomitant]
     Active Substance: ACETAMINOPHEN
  3. OMEPRAZOLE. [Concomitant]
     Active Substance: OMEPRAZOLE
  4. TRAMADOL. [Concomitant]
     Active Substance: TRAMADOL
  5. IBUPROFEN. [Concomitant]
     Active Substance: IBUPROFEN
  6. DILTIAZEM. [Concomitant]
     Active Substance: DILTIAZEM
  7. DIDANOSINE. [Concomitant]
     Active Substance: DIDANOSINE
  8. NOVOLOG [Concomitant]
     Active Substance: INSULIN ASPART
  9. TAZTIA XT [Concomitant]
     Active Substance: DILTIAZEM HYDROCHLORIDE
  10. PROCHLORPERAZIN [Concomitant]
     Active Substance: PROCHLORPERAZINE
  11. AZITHROMYCIN ANHYDROUS. [Concomitant]
     Active Substance: AZITHROMYCIN ANHYDROUS
  12. HYDROCODONE BITARTRATE AND ACETAMINOPHEN [Concomitant]
     Active Substance: ACETAMINOPHEN\HYDROCODONE BITARTRATE
  13. TYLENOL [Concomitant]
     Active Substance: ACETAMINOPHEN
  14. HUMALOG [Concomitant]
     Active Substance: INSULIN LISPRO
  15. ONDANSETRON [Concomitant]
     Active Substance: ONDANSETRON
  16. VIREAD [Suspect]
     Active Substance: TENOFOVIR DISOPROXIL FUMARATE
     Indication: HIV INFECTION
     Dosage: UNK
     Route: 048
     Dates: start: 2004, end: 2017
  17. VENTOLIN [Concomitant]
     Active Substance: ALBUTEROL SULFATE
  18. HYDRALAZINE [Concomitant]
     Active Substance: HYDRALAZINE HYDROCHLORIDE
  19. NITROSTAT [Concomitant]
     Active Substance: NITROGLYCERIN
  20. STRIBILD [Suspect]
     Active Substance: COBICISTAT\ELVITEGRAVIR\EMTRICITABINE\TENOFOVIR DISOPROXIL FUMARATE
     Indication: HIV INFECTION
     Dosage: UNK
     Route: 048
     Dates: start: 2005, end: 2009
  21. FAMOTIDINE. [Concomitant]
     Active Substance: FAMOTIDINE
  22. PRAVASTATIN. [Concomitant]
     Active Substance: PRAVASTATIN
  23. CIPRO [Concomitant]
     Active Substance: CIPROFLOXACIN HYDROCHLORIDE
  24. SERTRALINE [Concomitant]
     Active Substance: SERTRALINE HYDROCHLORIDE
  25. QUINAPRIL. [Concomitant]
     Active Substance: QUINAPRIL
  26. NAPROXEN. [Concomitant]
     Active Substance: NAPROXEN
  27. LANTUS [Concomitant]
     Active Substance: INSULIN GLARGINE
  28. FLUTICASONE. [Concomitant]
     Active Substance: FLUTICASONE
  29. VALACYCLOVIR [Concomitant]
     Active Substance: VALACYCLOVIR HYDROCHLORIDE
  30. METOPROLOL. [Concomitant]
     Active Substance: METOPROLOL
  31. BENZONATATE. [Concomitant]
     Active Substance: BENZONATATE
  32. CLONIDINE. [Concomitant]
     Active Substance: CLONIDINE
  33. ISORBIDE [ISOSORBIDE DINITRATE] [Concomitant]

REACTIONS (6)
  - Skeletal injury [Unknown]
  - End stage renal disease [Not Recovered/Not Resolved]
  - Chronic kidney disease-mineral and bone disorder [Unknown]
  - Renal injury [Unknown]
  - Chronic kidney disease [Unknown]
  - Renal failure [Unknown]

NARRATIVE: CASE EVENT DATE: 20170721
